FAERS Safety Report 7710745-3 (Version None)
Quarter: 2011Q3

REPORT INFORMATION
  Report Type: 
  Country: None (occurrence: None)
  Receive Date: 20110825
  Receipt Date: 20110815
  Transmission Date: 20111222
  Serious: Yes (Other)
  Sender: FDA-Public Use
  Company Number: PHHY2011DE42228

PATIENT
  Sex: Female

DRUGS (1)
  1. GILENYA [Suspect]
     Indication: MULTIPLE SCLEROSIS
     Dosage: 0.5 MG, EVERY DAY
     Route: 048
     Dates: start: 20110427, end: 20110513

REACTIONS (7)
  - COUGH [None]
  - CHILLS [None]
  - BRONCHITIS [None]
  - PYREXIA [None]
  - DYSPNOEA [None]
  - INCREASED VISCOSITY OF BRONCHIAL SECRETION [None]
  - RESTLESSNESS [None]
